FAERS Safety Report 5648293-7 (Version None)
Quarter: 2008Q1

REPORT INFORMATION
  Report Type: 
  Country: None (occurrence: None)
  Receive Date: 20080304
  Receipt Date: 20080212
  Transmission Date: 20080703
  Serious: Yes (Other)
  Sender: FDA-Public Use
  Company Number: US-BAYER-200813865GPV

PATIENT
  Sex: Female

DRUGS (3)
  1. FLUDARABINE [Suspect]
     Indication: BONE MARROW CONDITIONING REGIMEN
     Route: 042
  2. CYCLOPHOSPHAMIDE [Suspect]
     Indication: BONE MARROW CONDITIONING REGIMEN
     Route: 042
  3. RABBIT ANTITHYMOCYTE GLOBULIN (R ATG) [Suspect]
     Indication: BONE MARROW CONDITIONING REGIMEN
     Route: 042

REACTIONS (5)
  - ALOPECIA [None]
  - CAECITIS [None]
  - CYTOMEGALOVIRUS VIRAEMIA [None]
  - ENTEROBACTER SEPSIS [None]
  - MUCOSAL INFLAMMATION [None]
